FAERS Safety Report 14496353 (Version 6)
Quarter: 2018Q2

REPORT INFORMATION
  Report Type: Spontaneous
  Country: FR (occurrence: FR)
  Receive Date: 20180207
  Receipt Date: 20180420
  Transmission Date: 20180711
  Serious: Yes (Disabling, Congenital Anomaly, Other)
  Sender: FDA-Public Use
  Company Number: FR-AUROBINDO-AUR-APL-2018-005014

PATIENT
  Age: 2 Year
  Sex: Female
  Weight: 15 kg

DRUGS (24)
  1. LAMIVUDINE. [Suspect]
     Active Substance: LAMIVUDINE
     Dosage: UNK ()
     Route: 064
  2. DIDANOSINE. [Suspect]
     Active Substance: DIDANOSINE
     Dosage: UNK ()
     Route: 064
  3. LAMIVUDINE. [Suspect]
     Active Substance: LAMIVUDINE
     Dosage: UNK ()
     Route: 064
  4. RITONAVIR. [Suspect]
     Active Substance: RITONAVIR
     Dosage: UNK ()
     Route: 064
  5. LOPINAVIR [Suspect]
     Active Substance: LOPINAVIR
     Indication: HIV INFECTION
     Route: 064
  6. RITONAVIR. [Suspect]
     Active Substance: RITONAVIR
     Dosage: UNK ()
     Route: 064
  7. LAMIVUDINE. [Suspect]
     Active Substance: LAMIVUDINE
     Dosage: UNK ()
     Route: 064
  8. DIDANOSINE. [Suspect]
     Active Substance: DIDANOSINE
     Dosage: UNK ()
     Route: 064
  9. RITONAVIR. [Suspect]
     Active Substance: RITONAVIR
     Indication: HIV INFECTION
     Dosage: UNK ()
     Route: 064
  10. NEVIRAPIN [Suspect]
     Active Substance: NEVIRAPINE
     Indication: PROPHYLAXIS AGAINST HIV INFECTION
     Dosage: UNK ()
     Route: 048
  11. LAMIVUDINE. [Suspect]
     Active Substance: LAMIVUDINE
     Indication: PRODUCT USED FOR UNKNOWN INDICATION
     Dosage: UNK ()
     Route: 064
  12. LAMIVUDINE. [Suspect]
     Active Substance: LAMIVUDINE
     Dosage: UNK ()
     Route: 064
  13. LAMIVUDINE. [Suspect]
     Active Substance: LAMIVUDINE
     Dosage: UNK ()
     Route: 064
  14. DIDANOSINE. [Suspect]
     Active Substance: DIDANOSINE
     Dosage: UNK ()
     Route: 064
  15. RITONAVIR. [Suspect]
     Active Substance: RITONAVIR
     Dosage: UNK ()
     Route: 064
  16. RITONAVIR. [Suspect]
     Active Substance: RITONAVIR
     Dosage: UNK ()
     Route: 064
  17. LAMIVUDINE. [Suspect]
     Active Substance: LAMIVUDINE
     Indication: HIV INFECTION
     Dosage: UNK ()
     Route: 064
  18. RITONAVIR. [Suspect]
     Active Substance: RITONAVIR
     Indication: PRODUCT USED FOR UNKNOWN INDICATION
     Dosage: UNK ()
     Route: 064
  19. RITONAVIR. [Suspect]
     Active Substance: RITONAVIR
     Dosage: UNK ()
     Route: 064
  20. ZIDOVUDINE. [Suspect]
     Active Substance: ZIDOVUDINE
     Indication: HIV INFECTION
     Route: 064
  21. DIDANOSINE. [Suspect]
     Active Substance: DIDANOSINE
     Indication: HIV INFECTION
     Dosage: UNK ()
     Route: 064
  22. DIDANOSINE. [Suspect]
     Active Substance: DIDANOSINE
     Indication: PRODUCT USED FOR UNKNOWN INDICATION
     Dosage: UNK ()
     Route: 064
  23. DIDANOSINE. [Suspect]
     Active Substance: DIDANOSINE
     Dosage: UNK ()
     Route: 064
  24. DIDANOSINE. [Suspect]
     Active Substance: DIDANOSINE
     Dosage: UNK ()
     Route: 064

REACTIONS (7)
  - Burkitt^s lymphoma [Unknown]
  - Foetal exposure during pregnancy [Recovered/Resolved]
  - Retinoblastoma [Recovered/Resolved with Sequelae]
  - Neoplasm malignant [Recovered/Resolved with Sequelae]
  - Neutropenia neonatal [Recovered/Resolved with Sequelae]
  - Anaemia neonatal [Recovered/Resolved with Sequelae]
  - Strabismus [Recovered/Resolved with Sequelae]

NARRATIVE: CASE EVENT DATE: 20000601
